FAERS Safety Report 6014444-8 (Version None)
Quarter: 2008Q4

REPORT INFORMATION
  Report Type: 
  Country: None (occurrence: None)
  Receive Date: 20081219
  Receipt Date: 20080815
  Transmission Date: 20090506
  Serious: No
  Sender: FDA-Public Use
  Company Number: A0733965A

PATIENT
  Age: 71 Year
  Sex: Male
  Weight: 78.6 kg

DRUGS (9)
  1. AVODART [Suspect]
     Dosage: .5MG PER DAY
     Route: 048
     Dates: start: 20080306, end: 20080611
  2. FLOMAX [Concomitant]
  3. ATENOLOL [Concomitant]
  4. NIFEDIPINE [Concomitant]
  5. CRESTOR [Concomitant]
  6. NIACIN [Concomitant]
  7. MULTI-VITAMIN [Concomitant]
  8. FISH OIL [Concomitant]
  9. DICLOFENAC SODIUM [Concomitant]

REACTIONS (7)
  - EPIDIDYMITIS [None]
  - GENITAL RASH [None]
  - INFLAMMATION [None]
  - PRURITUS GENITAL [None]
  - SCROTAL ERYTHEMA [None]
  - SKIN IRRITATION [None]
  - TESTICULAR SWELLING [None]
